FAERS Safety Report 21943919 (Version 1)
Quarter: 2023Q1

REPORT INFORMATION
  Report Type: Spontaneous
  Country: US (occurrence: None)
  Receive Date: 20230201
  Receipt Date: 20230201
  Transmission Date: 20230417
  Serious: No
  Sender: FDA-Public Use
  Company Number: None

PATIENT
  Sex: Male

DRUGS (1)
  1. EVEROLIMUS [Suspect]
     Active Substance: EVEROLIMUS
     Indication: Metastases to bone
     Dosage: 5 MG DAILY ORAL
     Route: 048
     Dates: start: 202201

REACTIONS (2)
  - Therapy cessation [None]
  - Malignant neoplasm progression [None]
